FAERS Safety Report 5797531-9 (Version None)
Quarter: 2008Q3

REPORT INFORMATION
  Report Type: 
  Country: None (occurrence: None)
  Receive Date: 20080701
  Receipt Date: 20080701
  Transmission Date: 20090109
  Serious: No
  Sender: FDA-Public Use
  Company Number: None

PATIENT

DRUGS (3)
  1. TRILEPTAL [Suspect]
     Indication: SIMPLE PARTIAL SEIZURES
     Dosage: 450 MG QAM 600MG QHS PO
     Route: 048
  2. TRILEPTAL [Suspect]
     Indication: TUBEROUS SCLEROSIS
     Dosage: 450 MG QAM 600MG QHS PO
     Route: 048
  3. FELBATOL [Concomitant]

REACTIONS (1)
  - CONVULSION [None]
